FAERS Safety Report 10066151 (Version 1)
Quarter: 2014Q2

REPORT INFORMATION
  Report Type: Spontaneous
  Country: US (occurrence: US)
  Receive Date: 20140408
  Receipt Date: 20140408
  Transmission Date: 20141212
  Serious: Yes (Other)
  Sender: FDA-Public Use
  Company Number: US-B.I. PHARMACEUTICALS,INC./RIDGEFIELD-2014-BI-15162BP

PATIENT
  Age: 64 Year
  Sex: Female
  Weight: 53 kg

DRUGS (1)
  1. COMBIVENT [Suspect]
     Indication: CHRONIC OBSTRUCTIVE PULMONARY DISEASE
     Dosage: STRENGTH: 18 MCG / 103 MCG; DAILY DOSE: 108 MCG/824 MCG
     Route: 055
     Dates: start: 200309, end: 201310

REACTIONS (1)
  - Laryngeal cancer [Recovered/Resolved]
